FAERS Safety Report 4357491-4 (Version None)
Quarter: 2004Q2

REPORT INFORMATION
  Report Type: 
  Country: None (occurrence: None)
  Receive Date: 20040507
  Receipt Date: 20040426
  Transmission Date: 20050107
  Serious: Yes (Life-Threatening, Hospitalization)
  Sender: FDA-Public Use
  Company Number: HQ4041603SEP2002

PATIENT
  Age: 32 Year
  Sex: Male

DRUGS (8)
  1. EFFEXOR [Suspect]
     Dosage: 300 MG 1X PER 1 DAY
     Route: 048
     Dates: end: 20020103
  2. GEODON [Suspect]
     Indication: AFFECTIVE DISORDER
     Dosage: 120 MG 3X PER 1 DAY ORAL
     Route: 048
     Dates: start: 20010701, end: 20020103
  3. IMOVANE (ZOPICLONE) [Concomitant]
  4. RAMIPRIL [Concomitant]
  5. SELOKEN - SLOW RELEASE (METOPROLOL TARTRATE) [Concomitant]
  6. LANACRIST (DIGOXIN) [Concomitant]
  7. SPIRONOLACTONE  NM PJARMA  (SPIRONOLACTONE) [Concomitant]
  8. FUROSEMIDE [Concomitant]

REACTIONS (14)
  - ALANINE AMINOTRANSFERASE INCREASED [None]
  - ASPARTATE AMINOTRANSFERASE INCREASED [None]
  - BLOOD CREATININE INCREASED [None]
  - CARDIAC FAILURE [None]
  - CARDIOMYOPATHY [None]
  - DECREASED APPETITE [None]
  - DIARRHOEA [None]
  - GAMMA-GLUTAMYLTRANSFERASE INCREASED [None]
  - LIVER DISORDER [None]
  - LIVER FUNCTION TEST ABNORMAL [None]
  - NAUSEA [None]
  - RENAL DISORDER [None]
  - SHOCK [None]
  - VOMITING [None]
